FAERS Safety Report 10618153 (Version 1)
Quarter: 2014Q4

REPORT INFORMATION
  Report Type: Spontaneous
  Country: US (occurrence: US)
  Receive Date: 20141202
  Receipt Date: 20141202
  Transmission Date: 20150529
  Serious: Yes (Life-Threatening, Other)
  Sender: FDA-Public Use
  Company Number: US-DRREDDYS-USA/USA/14/0044664

PATIENT
  Age: 14 Year
  Sex: Female

DRUGS (9)
  1. AMOXICILLIN. [Suspect]
     Active Substance: AMOXICILLIN
     Indication: OROPHARYNGEAL PAIN
  2. PSEUDOEPHEDRINE [Suspect]
     Active Substance: PSEUDOEPHEDRINE
     Indication: OROPHARYNGEAL PAIN
  3. IBUPROFEN. [Suspect]
     Active Substance: IBUPROFEN
     Indication: COUGH
     Route: 065
  4. IBUPROFEN. [Suspect]
     Active Substance: IBUPROFEN
     Indication: OROPHARYNGEAL PAIN
  5. IBUPROFEN. [Suspect]
     Active Substance: IBUPROFEN
     Indication: MALAISE
  6. PSEUDOEPHEDRINE [Suspect]
     Active Substance: PSEUDOEPHEDRINE
     Indication: COUGH
     Route: 065
  7. PSEUDOEPHEDRINE [Suspect]
     Active Substance: PSEUDOEPHEDRINE
     Indication: MALAISE
  8. AMOXICILLIN. [Suspect]
     Active Substance: AMOXICILLIN
     Indication: MALAISE
  9. AMOXICILLIN. [Suspect]
     Active Substance: AMOXICILLIN
     Indication: COUGH
     Dosage: 1 DOSE
     Route: 065

REACTIONS (1)
  - Drug reaction with eosinophilia and systemic symptoms [Recovered/Resolved]
